FAERS Safety Report 8296402-6 (Version None)
Quarter: 2012Q1

REPORT INFORMATION
  Report Type: 
  Country: None (occurrence: None)
  Receive Date: 20120323
  Receipt Date: 20080609
  Transmission Date: 20120608
  Serious: Yes (Other)
  Sender: FDA-Public Use
  Company Number: PHEH2008US04297

PATIENT
  Age: 63 Year
  Sex: Female

DRUGS (9)
  1. ADVAIR HFA [Concomitant]
  2. SINGULAIR [Concomitant]
  3. XOPENEX [Concomitant]
  4. BENICAR HCT [Concomitant]
  5. SPIRIVA [Concomitant]
  6. OMNICEF [Concomitant]
  7. TOBI [Suspect]
     Indication: PSEUDOMONAS INFECTION
     Dosage: 200 MG, BID, INHALATION : 100 MG, BID
     Route: 055
     Dates: start: 20080407
  8. TOBI [Suspect]
     Indication: PSEUDOMONAS INFECTION
     Dosage: 200 MG, BID, INHALATION : 100 MG, BID
     Route: 055
     Dates: start: 20080409
  9. NEXIUM [Concomitant]

REACTIONS (3)
  - BRONCHOSPASM [None]
  - COUGH [None]
  - TINNITUS [None]
